FAERS Safety Report 9162173 (Version 1)
Quarter: 2013Q1

REPORT INFORMATION
  Report Type: Spontaneous
  Country: US (occurrence: None)
  Receive Date: 20130222
  Receipt Date: 20130222
  Transmission Date: 20140127
  Serious: Yes (Hospitalization)
  Sender: FDA-Public Use
  Company Number: JP-P-029890

PATIENT
  Age: 41 Year
  Sex: Female

DRUGS (3)
  1. XYREM [Suspect]
     Indication: CATAPLEXY
     Dosage: 4.5 GM (2.25 GM, 2 IN 1 D), ORAL?
     Route: 048
     Dates: start: 20110522, end: 20110711
  2. BLOOD PRESSURE MEDICATION [Concomitant]
  3. DIURETIC [Concomitant]

REACTIONS (2)
  - Gallbladder pain [None]
  - Cholecystectomy [None]
